FAERS Safety Report 5705331-0 (Version None)
Quarter: 2008Q2

REPORT INFORMATION
  Report Type: 
  Country: None (occurrence: None)
  Receive Date: 20080410
  Receipt Date: 20080328
  Transmission Date: 20081010
  Serious: No
  Sender: FDA-Public Use
  Company Number: JPI-P-003055

PATIENT
  Age: 33 Year
  Sex: Female

DRUGS (3)
  1. LUVOX [Suspect]
     Indication: BORDERLINE PERSONALITY DISORDER
     Dosage: 150 MG (150 MG,3 IN 1 D), ORAL
     Route: 048
     Dates: start: 20050307, end: 20060226
  2. ZOLPIDEM TARTRATE [Suspect]
     Indication: INSOMNIA
     Dosage: (UNKNOWN,AS REQUIRED), ORAL
     Route: 048
     Dates: start: 20050914, end: 20060226
  3. QUETIAPINE FUMARATE [Concomitant]

REACTIONS (13)
  - AFFECT LABILITY [None]
  - CONDITION AGGRAVATED [None]
  - DEPRESSED MOOD [None]
  - DRUG INTERACTION [None]
  - DRUG LEVEL INCREASED [None]
  - FEELING ABNORMAL [None]
  - INSOMNIA [None]
  - MEMORY IMPAIRMENT [None]
  - OBSESSIVE THOUGHTS [None]
  - SLEEP-RELATED EATING DISORDER [None]
  - SOCIAL AVOIDANT BEHAVIOUR [None]
  - STRESS [None]
  - SUICIDAL IDEATION [None]
